FAERS Safety Report 11387324 (Version 1)
Quarter: 2015Q3

REPORT INFORMATION
  Report Type: Spontaneous
  Country: AU (occurrence: AU)
  Receive Date: 20150817
  Receipt Date: 20150817
  Transmission Date: 20151125
  Serious: Yes (Hospitalization)
  Sender: FDA-Public Use
  Company Number: AU-MYLANLABS-2015M1028007

PATIENT

DRUGS (1)
  1. ACRIS ONCE-A-MONTH [Suspect]
     Active Substance: RISEDRONATE SODIUM
     Indication: PRODUCT USED FOR UNKNOWN INDICATION
     Dosage: 1 DF, MONTHLY
     Dates: start: 201404

REACTIONS (5)
  - Hospitalisation [Recovered/Resolved]
  - Chills [Unknown]
  - Diarrhoea [Unknown]
  - Vomiting [Unknown]
  - Pyrexia [Unknown]

NARRATIVE: CASE EVENT DATE: 201506
